FAERS Safety Report 23720711 (Version 7)
Quarter: 2025Q2

REPORT INFORMATION
  Report Type: Spontaneous
  Country: US (occurrence: US)
  Receive Date: 20240409
  Receipt Date: 20250513
  Transmission Date: 20250717
  Serious: Yes (Other)
  Sender: CSL BEHRING
  Company Number: US-BEH-2024170330

PATIENT
  Age: 15 Year
  Sex: Male

DRUGS (5)
  1. HUMATE-P [Suspect]
     Active Substance: HUMAN COAGULATION FACTOR VIII/VON WILLEBRAND FACTOR COMPLEX
     Indication: Von Willebrand^s disease
     Dosage: 4250 IU, TIW (EVERY MONDAY, WEDNESDAY, FRIDAY)
     Route: 042
     Dates: start: 201311
  2. HUMATE-P [Suspect]
     Active Substance: HUMAN COAGULATION FACTOR VIII/VON WILLEBRAND FACTOR COMPLEX
     Indication: Prophylaxis
     Route: 042
     Dates: start: 201311
  3. HUMATE-P [Suspect]
     Active Substance: HUMAN COAGULATION FACTOR VIII/VON WILLEBRAND FACTOR COMPLEX
     Dosage: 3500 IU, TIW
     Route: 042
     Dates: start: 201311
  4. SODIUM CHLORIDE [Concomitant]
     Active Substance: SODIUM CHLORIDE
  5. AMINOCAPROIC ACID [Concomitant]
     Active Substance: AMINOCAPROIC ACID

REACTIONS (12)
  - Haemarthrosis [Recovered/Resolved]
  - Haemarthrosis [Unknown]
  - Epistaxis [Recovered/Resolved]
  - Epistaxis [Recovered/Resolved]
  - Epistaxis [Recovered/Resolved]
  - Epistaxis [Unknown]
  - Joint injury [Unknown]
  - Epistaxis [Recovered/Resolved]
  - Epistaxis [Unknown]
  - Epistaxis [Unknown]
  - Epistaxis [Recovered/Resolved]
  - Epistaxis [Unknown]

NARRATIVE: CASE EVENT DATE: 20240201
